FAERS Safety Report 8904433 (Version 2)
Quarter: 2012Q4

REPORT INFORMATION
  Report Type: 
  Country: US (occurrence: US)
  Receive Date: 20121110
  Receipt Date: 20121121
  Transmission Date: 20130627
  Serious: Yes (Hospitalization)
  Sender: FDA-Public Use
  Company Number: US-US-EMD SERONO, INC.-7172262

PATIENT
  Sex: Female

DRUGS (1)
  1. REBIF [Suspect]
     Indication: MULTIPLE SCLEROSIS
     Route: 058
     Dates: start: 20071105

REACTIONS (4)
  - Concussion [Unknown]
  - Multiple sclerosis relapse [Unknown]
  - Fall [Unknown]
  - Post concussion syndrome [Not Recovered/Not Resolved]
